FAERS Safety Report 5330869-8 (Version None)
Quarter: 2007Q2

REPORT INFORMATION
  Report Type: 
  Country: None (occurrence: None)
  Receive Date: 20070522
  Receipt Date: 20070511
  Transmission Date: 20071010
  Serious: Yes (Life-Threatening, Hospitalization, Other)
  Sender: FDA-Public Use
  Company Number: GB-PFIZER INC-2006127613

PATIENT
  Age: 7 Year
  Sex: Male
  Weight: 20 kg

DRUGS (5)
  1. SOLU-MEDRONE [Suspect]
     Indication: RENAL TRANSPLANT
     Route: 042
  2. ALFACALCIDOL [Concomitant]
     Route: 048
  3. CEPHALEXIN [Concomitant]
     Route: 048
     Dates: start: 19990101
  4. MYCOPHENOLIC ACID [Concomitant]
     Dates: start: 20060507
  5. OXYBUTYNIN CHLORIDE [Concomitant]
     Route: 048
     Dates: start: 20010101

REACTIONS (4)
  - ANAPHYLACTIC REACTION [None]
  - BRONCHOSPASM [None]
  - HYPOTENSION [None]
  - METABOLIC ACIDOSIS [None]
